FAERS Safety Report 12508293 (Version 1)
Quarter: 2016Q2

REPORT INFORMATION
  Report Type: Spontaneous
  Country: US (occurrence: None)
  Receive Date: 20160628
  Receipt Date: 20160628
  Transmission Date: 20160815
  Serious: Yes (Other)
  Sender: FDA-Public Use
  Company Number: None

PATIENT
  Age: 75 Year
  Sex: Male
  Weight: 95.4 kg

DRUGS (1)
  1. CARBAMIDE PEROXIDE/GLYCERIN [Suspect]
     Active Substance: CARBAMIDE PEROXIDE\GLYCERIN
     Indication: CERUMEN IMPACTION
     Dosage: 1 DROPS BID EAR
     Dates: start: 20120201, end: 20120217

REACTIONS (2)
  - Rash [None]
  - Angioedema [None]

NARRATIVE: CASE EVENT DATE: 20120218
